FAERS Safety Report 18589681 (Version 3)
Quarter: 2020Q4

REPORT INFORMATION
  Report Type: Spontaneous
  Country: CZ (occurrence: CZ)
  Receive Date: 20201208
  Receipt Date: 20201217
  Transmission Date: 20210114
  Serious: Yes (Death, Other)
  Sender: FDA-Public Use
  Company Number: CZ-IPSEN BIOPHARMACEUTICALS, INC.-2020-24000

PATIENT
  Age: 63 Year
  Sex: Male
  Weight: 93 kg

DRUGS (9)
  1. SOMATULINE AUTOGEL [Suspect]
     Active Substance: LANREOTIDE ACETATE
     Indication: HEPATIC CANCER
     Route: 065
     Dates: start: 2020, end: 202006
  2. FOKUSIN [Concomitant]
     Active Substance: TAMSULOSIN
     Dosage: ONCE IN MORNING
  3. SOMATULINE AUTOGEL [Suspect]
     Active Substance: LANREOTIDE ACETATE
     Indication: NEUROENDOCRINE CARCINOMA
     Route: 065
     Dates: start: 201308, end: 2020
  4. DUSPATALIN [Concomitant]
     Active Substance: MEBEVERINE
     Dosage: ONCE IN MORNING AND ONCE AT NIGHT
  5. INTERFERON ALFA-2B [Concomitant]
     Active Substance: INTERFERON ALFA-2B
     Indication: HEPATIC CANCER
     Dosage: 3 MIU 3X PER WEEK
     Route: 058
     Dates: start: 201009, end: 201309
  6. INTERFERON ALFA-2B [Concomitant]
     Active Substance: INTERFERON ALFA-2B
     Dosage: 3 MIU 3X PER WEEK
     Route: 058
     Dates: start: 201311
  7. LOKREN [Concomitant]
     Active Substance: BETAXOLOL HYDROCHLORIDE
     Dosage: ONCE IN MORNING
  8. LORISTA H [Concomitant]
     Active Substance: HYDROCHLOROTHIAZIDE\LOSARTAN POTASSIUM
     Dosage: ONCE IN MORNING
  9. LOSEPRAZOL [Concomitant]
     Active Substance: OMEPRAZOLE
     Dosage: ONCE IN MORNING

REACTIONS (14)
  - Diarrhoea [Recovered/Resolved]
  - Depression [Unknown]
  - Neoplasm progression [Unknown]
  - Fatigue [Unknown]
  - Psychological trauma [Fatal]
  - Poor quality sleep [Unknown]
  - Product dose omission issue [Unknown]
  - Condition aggravated [Recovered/Resolved]
  - Weight decreased [Unknown]
  - Treatment noncompliance [Unknown]
  - Muscular weakness [Unknown]
  - Decreased appetite [Unknown]
  - Asthenia [Unknown]
  - Symptom recurrence [Unknown]

NARRATIVE: CASE EVENT DATE: 2013
